FAERS Safety Report 17561527 (Version 1)
Quarter: 2020Q1

REPORT INFORMATION
  Report Type: Spontaneous
  Country: US (occurrence: US)
  Receive Date: 20200319
  Receipt Date: 20200319
  Transmission Date: 20200409
  Serious: No
  Sender: FDA-Public Use
  Company Number: US-009507513-2003USA007311

PATIENT
  Age: 18 Month
  Sex: Female

DRUGS (1)
  1. PRIMAXIN IV [Suspect]
     Active Substance: CILASTATIN SODIUM\IMIPENEM
     Indication: MYCOBACTERIUM ABSCESSUS INFECTION
     Dosage: 25 MILLIGRAM/KILOGRAM, Q6H
     Route: 042

REACTIONS (2)
  - Product use issue [Unknown]
  - Product use in unapproved indication [Unknown]
